FAERS Safety Report 22918390 (Version 7)
Quarter: 2025Q4

REPORT INFORMATION
  Report Type: Other
  Country: US (occurrence: US)
  Receive Date: 20230907
  Receipt Date: 20251125
  Transmission Date: 20260118
  Serious: No
  Sender: TRAVERE THERAPEUTICS
  Company Number: US-TRAVERE-2023TVT00423

PATIENT
  Age: 81 Year
  Sex: Female

DRUGS (4)
  1. FILSPARI [Suspect]
     Active Substance: SPARSENTAN
     Indication: IgA nephropathy
     Dosage: 200 MG
     Route: 048
  2. FILSPARI [Suspect]
     Active Substance: SPARSENTAN
     Indication: Haematuria
     Dosage: 400 MG
     Route: 048
     Dates: start: 20230824
  3. FILSPARI [Suspect]
     Active Substance: SPARSENTAN
     Indication: Chronic kidney disease
     Dosage: 400 MG
     Route: 048
     Dates: start: 20230918
  4. FILSPARI [Suspect]
     Active Substance: SPARSENTAN
     Indication: Proteinuria

REACTIONS (8)
  - Chest pain [Unknown]
  - Urinary tract infection [Unknown]
  - Nausea [Unknown]
  - Headache [None]
  - Oedema peripheral [None]
  - Hypertension [Unknown]
  - Diarrhoea [Unknown]
  - Nausea [Unknown]
